FAERS Safety Report 19362805 (Version 3)
Quarter: 2021Q2

REPORT INFORMATION
  Report Type: Spontaneous
  Country: US (occurrence: US)
  Receive Date: 20210603
  Receipt Date: 20210608
  Transmission Date: 20210717
  Serious: No
  Sender: FDA-Public Use
  Company Number: US-AMGEN INC.-USASP2021085055

PATIENT
  Age: 52 Year
  Sex: Female
  Weight: 67.57 kg

DRUGS (1)
  1. AIMOVIG [Suspect]
     Active Substance: ERENUMAB-AOOE
     Indication: MIGRAINE WITH AURA
     Dosage: 140 MILLIGRAM, QMO
     Route: 065
     Dates: start: 20210601

REACTIONS (3)
  - Accidental exposure to product [Unknown]
  - Injection site haemorrhage [Unknown]
  - Device difficult to use [Unknown]

NARRATIVE: CASE EVENT DATE: 20210601
